FAERS Safety Report 12575964 (Version 1)
Quarter: 2016Q3

REPORT INFORMATION
  Report Type: Spontaneous
  Country: IT (occurrence: IT)
  Receive Date: 20160720
  Receipt Date: 20160720
  Transmission Date: 20161109
  Serious: Yes (Hospitalization)
  Sender: FDA-Public Use
  Company Number: IT-NORTHSTAR HEALTHCARE HOLDINGS-IT-2016NSR001812

PATIENT
  Age: 87 Year
  Sex: Female

DRUGS (6)
  1. LANSOPRAZOLE. [Concomitant]
     Active Substance: LANSOPRAZOLE
     Indication: PRODUCT USED FOR UNKNOWN INDICATION
     Dosage: 30 MG, DAILY
  2. METFORMIN [Concomitant]
     Active Substance: METFORMIN HYDROCHLORIDE
     Indication: PRODUCT USED FOR UNKNOWN INDICATION
     Dosage: 2 G, DAILY
  3. ALENDRONATE SODIUM W/COLECALCIFEROL [Concomitant]
     Active Substance: ALENDRONATE SODIUM\CHOLECALCIFEROL
     Indication: PRODUCT USED FOR UNKNOWN INDICATION
     Dosage: 70 MG + 5600 IU, WEEKLY
  4. ALLOPURINOL. [Suspect]
     Active Substance: ALLOPURINOL
     Indication: BLOOD URIC ACID INCREASED
     Dosage: 300 MG, DAILY
  5. VALSARTAN HYDROCHLOROTHIAZIDE KRKA [Concomitant]
     Active Substance: HYDROCHLOROTHIAZIDE\VALSARTAN
     Indication: PRODUCT USED FOR UNKNOWN INDICATION
     Dosage: 80/12.5 MG, DAILY
  6. ACETYLSALICYLIC ACID [Concomitant]
     Active Substance: ASPIRIN
     Indication: PRODUCT USED FOR UNKNOWN INDICATION
     Dosage: 100 MG, DAILY

REACTIONS (22)
  - Dyspnoea [Recovered/Resolved]
  - Pain in extremity [Recovered/Resolved]
  - Splenomegaly [Recovered/Resolved]
  - Erythema [Recovered/Resolved]
  - Pyrexia [Recovered/Resolved]
  - Acute febrile neutrophilic dermatosis [Recovered/Resolved]
  - Nodule [Recovered/Resolved]
  - Rash pustular [Recovered/Resolved]
  - Oedema peripheral [Recovered/Resolved]
  - Pleural effusion [Recovered/Resolved]
  - Dilatation atrial [Recovered/Resolved]
  - Diastolic dysfunction [Recovered/Resolved]
  - Arthralgia [Recovered/Resolved]
  - Left ventricular hypertrophy [Recovered/Resolved]
  - Skin discolouration [Recovered/Resolved]
  - Skin lesion [Recovered/Resolved]
  - Conjunctivitis [Recovered/Resolved]
  - Skin plaque [Recovered/Resolved]
  - Tachyarrhythmia [Recovered/Resolved]
  - Leukocytosis [Recovered/Resolved]
  - Hepatic function abnormal [Recovered/Resolved]
  - Atrial fibrillation [Recovered/Resolved]
